FAERS Safety Report 6305804 (Version 11)
Quarter: 2017Q3

REPORT INFORMATION
  Report Type: Report from Study
  Country: JP (occurrence: JP)
  Receive Date: 20070507
  Receipt Date: 20170802
  Transmission Date: 20171128
  Serious: Yes (Life-Threatening, Disabling, Other)
  Sender: FDA-Public Use
  Company Number: JP-BRISTOL-MYERS SQUIBB COMPANY-13769260

PATIENT
  Age: 24 Year
  Sex: Male

DRUGS (11)
  1. DIDANOSINE. [Suspect]
     Active Substance: DIDANOSINE
     Indication: HIV INFECTION
     Dosage: 400 MG, QD
     Route: 048
     Dates: start: 20010721, end: 20040514
  2. ZIAGEN [Suspect]
     Active Substance: ABACAVIR SULFATE
     Indication: PRODUCT USED FOR UNKNOWN INDICATION
     Dosage: 24JUL-25JUL00(2D)600MG  20OCT-27OCT01(8D)600MG  INT 25JUL00
     Route: 048
     Dates: start: 20000724, end: 20011027
  3. INVIRASE [Suspect]
     Active Substance: SAQUINAVIR MESYLATE
     Indication: HIV INFECTION
     Dosage: CAPS; 19JUN99-18MAR00(274D)  24MAY-24DEC00(215D)800MG
     Route: 048
     Dates: start: 19990619, end: 20010331
  4. VIDEX [Suspect]
     Active Substance: DIDANOSINE
     Indication: HIV INFECTION
     Dosage: 19DEC94-7MAR97(125MG) 810D  8MAR97-21JUL01(300MG)1597D  22JUL-14MAY04(400MG)1028D
     Route: 048
     Dates: start: 19941119, end: 20040514
  5. CROSS EIGHT M [Concomitant]
     Active Substance: ANTIHEMOPHILIC FACTOR HUMAN
     Indication: HAEMARTHROSIS
     Dosage: 1DF=INJ
     Route: 042
     Dates: start: 19991101, end: 20120401
  6. NORVIR [Suspect]
     Active Substance: RITONAVIR
     Indication: HIV INFECTION
     Dosage: 19JUN-31OCT99;400MG  1NOV99-24DEC00;420D  100MG/D 24APR05-19SEP08;1244D  200MG/D 20SEP08-CONT
     Route: 048
     Dates: start: 19990619, end: 20080919
  7. EFAVIRENZ [Suspect]
     Active Substance: EFAVIRENZ
     Indication: HIV INFECTION
     Dosage: 24-25JUL00(2D)-600MG  25SEP00-2OCT00(8D)
     Route: 048
     Dates: start: 20000724, end: 20001002
  8. ZERIT [Suspect]
     Active Substance: STAVUDINE
     Indication: HIV INFECTION
     Dosage: 25AUG97-27FEB98(187D)  27FEB-03AUG98(158)  3AUG-9NOV(99)  9NOV98-19JN99(223)  25DC00-20OC01(300D)
     Route: 048
     Dates: start: 19970825, end: 20011020
  9. CRIXIVAN [Suspect]
     Active Substance: INDINAVIR SULFATE
     Indication: HIV INFECTION
     Dosage: 800 MG, QD
     Route: 048
     Dates: start: 20000318, end: 20000524
  10. KALETRA [Suspect]
     Active Substance: LOPINAVIR\RITONAVIR
     Indication: HIV INFECTION
     Dosage: 6 DF, QD
     Route: 048
     Dates: start: 20001225, end: 20040424
  11. EPIVIR [Suspect]
     Active Substance: LAMIVUDINE
     Indication: HIV INFECTION
     Dosage: TAB
     Route: 048
     Dates: start: 20040515, end: 20080919

REACTIONS (3)
  - Dizziness [Recovering/Resolving]
  - Pulmonary hypertension [Not Recovered/Not Resolved]
  - Palpitations [Recovering/Resolving]

NARRATIVE: CASE EVENT DATE: 20000318
